FAERS Safety Report 13027627 (Version 3)
Quarter: 2020Q3

REPORT INFORMATION
  Report Type: Report from Study
  Country: US (occurrence: US)
  Receive Date: 20161214
  Receipt Date: 20170222
  Transmission Date: 20201105
  Serious: Yes (Hospitalization)
  Sender: FDA-Public Use
  Company Number: US-JNJFOC-20161209580

PATIENT
  Age: 83 Year
  Sex: Male
  Weight: 40.6 kg

DRUGS (10)
  1. PATADAY [Concomitant]
     Active Substance: OLOPATADINE HYDROCHLORIDE
     Indication: DRY EYE
     Dosage: 1 DROP INTO BOTH EYES
     Route: 047
     Dates: start: 20160310
  2. OMEPRAZOLE. [Concomitant]
     Active Substance: OMEPRAZOLE
     Indication: GASTROOESOPHAGEAL REFLUX DISEASE
     Route: 048
  3. LEXAPRO [Concomitant]
     Active Substance: ESCITALOPRAM OXALATE
     Indication: DEPRESSION
     Route: 048
     Dates: start: 2016
  4. TAMSULOSIN [Concomitant]
     Active Substance: TAMSULOSIN
     Indication: BENIGN PROSTATIC HYPERPLASIA
     Route: 065
  5. MIRTAZAPINE. [Concomitant]
     Active Substance: MIRTAZAPINE
     Indication: DECREASED APPETITE
     Dates: start: 201506
  6. IBRUTINIB [Suspect]
     Active Substance: IBRUTINIB
     Indication: CHRONIC LYMPHOCYTIC LEUKAEMIA
     Route: 048
     Dates: start: 20130220, end: 20160528
  7. IBRUTINIB [Suspect]
     Active Substance: IBRUTINIB
     Indication: CHRONIC LYMPHOCYTIC LEUKAEMIA
     Dosage: 2 X 140 MG CAPSULES
     Route: 048
     Dates: start: 20160529, end: 20161115
  8. MURO 128 [Concomitant]
     Active Substance: SODIUM CHLORIDE
     Indication: DRY EYE
     Dosage: 1 DROP INTO LEFT EYE
     Route: 047
     Dates: start: 20160310
  9. MEGACE [Concomitant]
     Active Substance: MEGESTROL ACETATE
     Indication: INCREASED APPETITE
     Route: 065
  10. TRAZODONE [Concomitant]
     Active Substance: TRAZODONE HYDROCHLORIDE
     Indication: DEPRESSION
     Route: 048
     Dates: start: 201605

REACTIONS (2)
  - Pneumonia [Recovered/Resolved]
  - Septic shock [Recovered/Resolved]

NARRATIVE: CASE EVENT DATE: 20161118
